FAERS Safety Report 21206520 (Version 2)
Quarter: 2022Q4

REPORT INFORMATION
  Report Type: Report from Study
  Country: US (occurrence: US)
  Receive Date: 20220812
  Receipt Date: 20221222
  Transmission Date: 20230113
  Serious: Yes (Other)
  Sender: FDA-Public Use
  Company Number: US-INSMED, INC.-2021-09217-US

PATIENT
  Sex: Female

DRUGS (1)
  1. ARIKAYCE [Suspect]
     Active Substance: AMIKACIN
     Indication: Mycobacterial infection
     Dosage: 590 MILLIGRAM, QD
     Route: 055

REACTIONS (6)
  - Brain neoplasm [Unknown]
  - Emergency care [Recovered/Resolved]
  - Deafness [Unknown]
  - Intentional dose omission [Unknown]
  - Device breakage [Unknown]
  - Device use issue [Unknown]

NARRATIVE: CASE EVENT DATE: 20210101
